FAERS Safety Report 25403804 (Version 1)
Quarter: 2025Q2

REPORT INFORMATION
  Report Type: Spontaneous
  Country: US (occurrence: US)
  Receive Date: 20250606
  Receipt Date: 20250606
  Transmission Date: 20250716
  Serious: Yes (Other)
  Sender: AMGEN
  Company Number: US-AMGEN-USASP2025106296

PATIENT
  Age: 60 Year
  Sex: Female

DRUGS (16)
  1. PREDNISONE [Suspect]
     Active Substance: PREDNISONE
     Indication: Rheumatoid arthritis
     Route: 048
  2. PREDNISONE [Suspect]
     Active Substance: PREDNISONE
     Route: 061
  3. PREDNISONE [Suspect]
     Active Substance: PREDNISONE
     Dosage: 40 MILLIGRAM, QD
     Route: 048
  4. PREDNISONE [Suspect]
     Active Substance: PREDNISONE
     Dosage: 5 MILLIGRAM, QD
     Route: 048
  5. ETANERCEPT [Suspect]
     Active Substance: ETANERCEPT
     Indication: Rheumatoid arthritis
     Route: 065
  6. RITUXIMAB [Suspect]
     Active Substance: RITUXIMAB
     Indication: Rheumatoid arthritis
     Route: 065
  7. METHOTREXATE [Concomitant]
     Active Substance: METHOTREXATE
  8. LEFLUNOMIDE [Concomitant]
     Active Substance: LEFLUNOMIDE
  9. AZATHIOPRINE [Concomitant]
     Active Substance: AZATHIOPRINE
  10. ADALIMUMAB [Concomitant]
     Active Substance: ADALIMUMAB
  11. ABATACEPT [Concomitant]
     Active Substance: ABATACEPT
  12. CERTOLIZUMAB [Concomitant]
     Active Substance: CERTOLIZUMAB
  13. TOFACITINIB [Concomitant]
     Active Substance: TOFACITINIB
  14. CYCLOPHOSPHAMIDE [Concomitant]
     Active Substance: CYCLOPHOSPHAMIDE
  15. TRIAMCINOLONE ACETONIDE [Concomitant]
     Active Substance: TRIAMCINOLONE ACETONIDE
  16. TIMOLOL [Concomitant]
     Active Substance: TIMOLOL
     Dosage: UNK UNK, BID

REACTIONS (5)
  - Scleritis [Unknown]
  - Inflammation [Unknown]
  - Glycosylated haemoglobin increased [Unknown]
  - Drug ineffective [Unknown]
  - Drug intolerance [Unknown]
